FAERS Safety Report 13245127 (Version 1)
Quarter: 2017Q1

REPORT INFORMATION
  Report Type: Spontaneous
  Country: US (occurrence: US)
  Receive Date: 20170217
  Receipt Date: 20170217
  Transmission Date: 20170428
  Serious: No
  Sender: FDA-Public Use
  Company Number: US-GUERBET LLC-1063258

PATIENT

DRUGS (8)
  1. DOXORUBICIN HYDROCHLORIDE. [Concomitant]
     Active Substance: DOXORUBICIN HYDROCHLORIDE
     Route: 013
  2. OCTREOTIDE. [Concomitant]
     Active Substance: OCTREOTIDE
     Route: 013
  3. IOHEXOL [Concomitant]
     Active Substance: IOHEXOL
  4. CISPLATIN. [Concomitant]
     Active Substance: CISPLATIN
     Route: 013
  5. HYDROCORTISONE. [Concomitant]
     Active Substance: HYDROCORTISONE
  6. MITOMYCIN. [Concomitant]
     Active Substance: MITOMYCIN
     Route: 013
  7. LIPIODOL [Suspect]
     Active Substance: ETHIODIZED OIL
     Indication: THERAPEUTIC EMBOLISATION
     Route: 013
  8. ALLOPURINOL. [Concomitant]
     Active Substance: ALLOPURINOL

REACTIONS (3)
  - Post embolisation syndrome [Unknown]
  - Off label use [Unknown]
  - Post procedural complication [Unknown]
